FAERS Safety Report 19671902 (Version 1)
Quarter: 2021Q3

REPORT INFORMATION
  Report Type: Spontaneous
  Country: AT (occurrence: AT)
  Receive Date: 20210806
  Receipt Date: 20210806
  Transmission Date: 20211014
  Serious: Yes (Hospitalization)
  Sender: FDA-Public Use
  Company Number: NVSC2021AT178171

PATIENT
  Sex: Male

DRUGS (11)
  1. AMOXICILLIN. [Suspect]
     Active Substance: AMOXICILLIN
     Indication: HELICOBACTER GASTRITIS
     Dosage: UNK, QD (0?1?0)
     Route: 065
  2. XANOR [Concomitant]
     Active Substance: ALPRAZOLAM
     Indication: RESTLESSNESS
     Dosage: ON DEMAND
     Route: 065
  3. CLARITHROMYCIN. [Suspect]
     Active Substance: CLARITHROMYCIN
     Indication: HELICOBACTER GASTRITIS
     Dosage: UNK UNK, QD (0?1?0)
     Route: 065
  4. PANTOPRAZOLE [Suspect]
     Active Substance: PANTOPRAZOLE
     Indication: HELICOBACTER GASTRITIS
     Dosage: UNK, QD (1?0?0)
     Route: 065
  5. THROMBO ASS [Concomitant]
     Active Substance: ASPIRIN
     Indication: PRODUCT USED FOR UNKNOWN INDICATION
     Dosage: UNK, QD (0?1?0)
     Route: 065
  6. TRIGELAN [Concomitant]
     Indication: PRODUCT USED FOR UNKNOWN INDICATION
     Dosage: UNK, QD (1?0?0) (STRENGTH 100, 37.5, 200 MG)
     Route: 065
  7. TRIGELAN [Concomitant]
     Dosage: UNK, BID (0?1?1) (STRENGTH 100, 25, 200 MG)
     Route: 065
  8. DETRUSITOL [Concomitant]
     Active Substance: TOLTERODINE TARTRATE
     Indication: PRODUCT USED FOR UNKNOWN INDICATION
     Dosage: UNK, QD (1?0?0)
     Route: 065
  9. ANAEROBEX [Concomitant]
     Active Substance: METRONIDAZOLE
     Indication: PRODUCT USED FOR UNKNOWN INDICATION
     Dosage: UNK, QD (0?1?0)
     Route: 065
  10. CITALOPRAM [Suspect]
     Active Substance: CITALOPRAM HYDROBROMIDE
     Indication: BARRETT^S OESOPHAGUS
     Dosage: UNK, QD (1?0?0)
     Route: 065
  11. TRITTICO [Concomitant]
     Active Substance: TRAZODONE HYDROCHLORIDE
     Indication: PRODUCT USED FOR UNKNOWN INDICATION
     Dosage: UNK, QD (0?0?1)
     Route: 065

REACTIONS (5)
  - Nausea [Recovering/Resolving]
  - Confusional state [Recovering/Resolving]
  - General physical health deterioration [Recovering/Resolving]
  - Disorientation [Recovering/Resolving]
  - Diarrhoea [Recovering/Resolving]
